FAERS Safety Report 24818353 (Version 1)
Quarter: 2025Q1

REPORT INFORMATION
  Report Type: Spontaneous
  Country: US (occurrence: US)
  Receive Date: 20250108
  Receipt Date: 20250108
  Transmission Date: 20250409
  Serious: No
  Sender: ELI LILLY AND COMPANY
  Company Number: US-ELI_LILLY_AND_COMPANY-US202501004619

PATIENT
  Age: 57 Year
  Sex: Female

DRUGS (9)
  1. HUMALOG KWIKPEN [Suspect]
     Active Substance: INSULIN LISPRO
     Indication: Diabetes mellitus
     Route: 065
  2. HUMALOG KWIKPEN [Suspect]
     Active Substance: INSULIN LISPRO
     Route: 065
  3. HUMALOG KWIKPEN [Suspect]
     Active Substance: INSULIN LISPRO
     Route: 065
  4. HUMALOG KWIKPEN [Suspect]
     Active Substance: INSULIN LISPRO
     Route: 065
  5. HUMALOG KWIKPEN [Suspect]
     Active Substance: INSULIN LISPRO
     Route: 065
  6. HUMALOG KWIKPEN [Suspect]
     Active Substance: INSULIN LISPRO
     Route: 065
  7. HUMULIN R U-500 [Suspect]
     Active Substance: INSULIN HUMAN
     Indication: Diabetes mellitus
     Route: 065
  8. HUMULIN R U-500 [Suspect]
     Active Substance: INSULIN HUMAN
     Route: 065
  9. HUMULIN R U-500 [Suspect]
     Active Substance: INSULIN HUMAN
     Route: 065

REACTIONS (2)
  - Sjogren^s syndrome [Not Recovered/Not Resolved]
  - Pollakiuria [Not Recovered/Not Resolved]
